FAERS Safety Report 11542590 (Version 4)
Quarter: 2022Q1

REPORT INFORMATION
  Report Type: Report from Study
  Country: US (occurrence: US)
  Receive Date: 20150923
  Receipt Date: 20220228
  Transmission Date: 20220423
  Serious: No
  Sender: FDA-Public Use
  Company Number: PHEH2014US000443

PATIENT
  Sex: Female
  Weight: 68.934 kg

DRUGS (6)
  1. GILENYA [Suspect]
     Active Substance: FINGOLIMOD HYDROCHLORIDE
     Indication: Relapsing-remitting multiple sclerosis
     Dosage: 0.5 MG, QD
     Route: 048
     Dates: start: 20120402, end: 20131226
  2. VITAMINS [Concomitant]
     Active Substance: VITAMINS
     Indication: Vitamin D deficiency
     Dosage: UNK, QD
     Route: 065
     Dates: end: 20131226
  3. VITAMINS [Concomitant]
     Active Substance: VITAMINS
     Indication: Vitamin supplementation
     Dosage: UNK, QD
     Route: 065
     Dates: start: 20140102
  4. XANAX [Concomitant]
     Active Substance: ALPRAZOLAM
     Indication: Anxiety
     Dosage: 0.52 MG, PRN
     Route: 065
     Dates: start: 20131108, end: 20131220
  5. XANAX [Concomitant]
     Active Substance: ALPRAZOLAM
     Dosage: 0.52 MG, PRN
     Route: 048
     Dates: start: 20131220
  6. COPAXONE [Concomitant]
     Active Substance: GLATIRAMER ACETATE
     Indication: Multiple sclerosis
     Dosage: UNK
     Route: 065
     Dates: start: 20140109, end: 20140110

REACTIONS (1)
  - Maternal exposure during pregnancy [Unknown]
